FAERS Safety Report 4648372-7 (Version None)
Quarter: 2005Q2

REPORT INFORMATION
  Report Type: 
  Country: None (occurrence: None)
  Receive Date: 20050427
  Receipt Date: 20050412
  Transmission Date: 20051028
  Serious: Yes (Death)
  Sender: FDA-Public Use
  Company Number: JP_050406336

PATIENT
  Age: 53 Year
  Sex: Female

DRUGS (4)
  1. ONCOVIN [Suspect]
     Indication: NON-HODGKIN'S LYMPHOMA
     Dosage: 1.5 MG/M2 OTHER
     Dates: start: 20001001, end: 20030601
  2. METHOTREXATE [Concomitant]
  3. PREDNISOLONE [Concomitant]
  4. CYTARABINE [Concomitant]

REACTIONS (9)
  - AMNESIA [None]
  - BRAIN NEOPLASM [None]
  - CENTRAL NERVOUS SYSTEM LYMPHOMA [None]
  - DEMENTIA [None]
  - MEMORY IMPAIRMENT [None]
  - METASTASES TO BREAST [None]
  - NEOPLASM RECURRENCE [None]
  - NON-HODGKIN'S LYMPHOMA RECURRENT [None]
  - VITREOUS DISORDER [None]
